FAERS Safety Report 10080566 (Version 2)
Quarter: 2014Q2

REPORT INFORMATION
  Report Type: Spontaneous
  Country: FR (occurrence: FR)
  Receive Date: 20140416
  Receipt Date: 20140506
  Transmission Date: 20141212
  Serious: Yes (Hospitalization)
  Sender: FDA-Public Use
  Company Number: FR-ROCHE-1381087

PATIENT
  Age: 51 Year
  Sex: Female

DRUGS (3)
  1. COPEGUS [Suspect]
     Indication: CHRONIC HEPATITIS C
     Route: 048
     Dates: start: 20120107, end: 201202
  2. PEGASYS [Concomitant]
     Indication: CHRONIC HEPATITIS C
     Route: 058
     Dates: start: 201111, end: 201202
  3. EFFEXOR [Concomitant]
     Indication: DEPRESSION
     Route: 048
     Dates: end: 201202

REACTIONS (2)
  - Rash pustular [Recovered/Resolved]
  - Face oedema [Recovered/Resolved]
